FAERS Safety Report 5223582-9 (Version None)
Quarter: 2007Q1

REPORT INFORMATION
  Report Type: 
  Country: None (occurrence: None)
  Receive Date: 20070125
  Receipt Date: 20070118
  Transmission Date: 20070707
  Serious: Yes (Hospitalization)
  Sender: FDA-Public Use
  Company Number: 2007-00224

PATIENT
  Age: 67 Year
  Sex: Male

DRUGS (2)
  1. FLUOROURACIL [Suspect]
     Indication: RECTAL CANCER
     Dosage: 1575 MG/M2, 1/WEEK
  2. RADIATION() [Suspect]
     Dosage: 18 GY IN 28 FRACTIONS

REACTIONS (2)
  - DRUG INTERACTION POTENTIATION [None]
  - GASTROENTERITIS RADIATION [None]
